FAERS Safety Report 7496406-7 (Version None)
Quarter: 2011Q2

REPORT INFORMATION
  Report Type: 
  Country: None (occurrence: None)
  Receive Date: 20110523
  Receipt Date: 20110509
  Transmission Date: 20111010
  Serious: Yes (Hospitalization)
  Sender: FDA-Public Use
  Company Number: PHHY2011US39089

PATIENT
  Age: 47 Year
  Sex: Male

DRUGS (14)
  1. SIMVASTATIN [Concomitant]
  2. AMLODIPINE [Concomitant]
  3. MAGNESIUM [Concomitant]
  4. PREDNISONE [Concomitant]
     Dosage: 10 MG/DAY
  5. SALMETEROL [Concomitant]
  6. CALCITRIOL [Concomitant]
  7. FLUTICASONE PROPIONATE [Concomitant]
  8. TEMAZ [Concomitant]
  9. ASPIRIN [Concomitant]
  10. HYDROXYCHLOROQUINE SULFATE [Suspect]
     Dosage: 200 MG, BID
  11. HYDROXYCHLOROQUINE SULFATE [Suspect]
     Dosage: 200 MG, TID
  12. NAPROXEN [Concomitant]
  13. MYCOPHENOLATE MOFETIL [Concomitant]
     Dosage: 500 MG, BID
  14. CALCIUM CARBONATE [Concomitant]

REACTIONS (52)
  - CARDIOMEGALY [None]
  - ELECTROCARDIOGRAM ST SEGMENT ELEVATION [None]
  - EJECTION FRACTION DECREASED [None]
  - TORSADE DE POINTES [None]
  - RETCHING [None]
  - PLEURAL EFFUSION [None]
  - PUPILLARY REFLEX IMPAIRED [None]
  - NODAL ARRHYTHMIA [None]
  - TRICUSPID VALVE INCOMPETENCE [None]
  - DYSPNOEA PAROXYSMAL NOCTURNAL [None]
  - BEDRIDDEN [None]
  - DYSPNOEA EXERTIONAL [None]
  - ARTERIAL OCCLUSIVE DISEASE [None]
  - GASTROINTESTINAL SOUNDS ABNORMAL [None]
  - LEFT VENTRICULAR HYPERTROPHY [None]
  - OEDEMA PERIPHERAL [None]
  - ABDOMINAL DISTENSION [None]
  - PYREXIA [None]
  - NAUSEA [None]
  - MYALGIA [None]
  - CORONARY ARTERY OCCLUSION [None]
  - RASH MACULAR [None]
  - HEPATOJUGULAR REFLUX [None]
  - HYPOXIA [None]
  - OXYGEN SATURATION DECREASED [None]
  - MITRAL VALVE INCOMPETENCE [None]
  - ABDOMINAL PAIN [None]
  - MUCOUS MEMBRANE DISORDER [None]
  - ATRIOVENTRICULAR DISSOCIATION [None]
  - SINUS TACHYCARDIA [None]
  - OCULAR ICTERUS [None]
  - CARDIAC FAILURE [None]
  - ORTHOPNOEA [None]
  - ELECTROCARDIOGRAM QT PROLONGED [None]
  - DYSPNOEA [None]
  - HEPATIC FUNCTION ABNORMAL [None]
  - PALLOR [None]
  - VOMITING [None]
  - CARDIAC ARREST [None]
  - PAIN [None]
  - RESPIRATORY RATE INCREASED [None]
  - VENTRICULAR HYPERTROPHY [None]
  - CARDIAC MURMUR [None]
  - DIARRHOEA [None]
  - RENAL IMPAIRMENT [None]
  - PALMAR ERYTHEMA [None]
  - ASCITES [None]
  - RALES [None]
  - CARDIOTOXICITY [None]
  - VENTRICULAR TACHYCARDIA [None]
  - RHONCHI [None]
  - BREATH SOUNDS ABNORMAL [None]
